FAERS Safety Report 17064778 (Version 1)
Quarter: 2019Q4

REPORT INFORMATION
  Report Type: Report from Study
  Country: TW (occurrence: TW)
  Receive Date: 20191122
  Receipt Date: 20191122
  Transmission Date: 20200122
  Serious: Yes (Hospitalization)
  Sender: FDA-Public Use
  Company Number: TW-REGENERON PHARMACEUTICALS, INC.-2019-66683

PATIENT

DRUGS (3)
  1. EYLEA [Suspect]
     Active Substance: AFLIBERCEPT
     Dosage: 0.05 ML, ONCE
     Route: 031
     Dates: start: 201910, end: 201910
  2. EYLEA [Suspect]
     Active Substance: AFLIBERCEPT
     Indication: RETINAL VEIN OCCLUSION
     Dosage: 0.05 ML, ONCE
     Route: 031
     Dates: start: 20190730, end: 20190730
  3. EYLEA [Suspect]
     Active Substance: AFLIBERCEPT
     Dosage: 0.05 ML, ONCE
     Route: 031
     Dates: start: 20190905, end: 20190905

REACTIONS (2)
  - Eye haemorrhage [Unknown]
  - Eyelid injury [Unknown]

NARRATIVE: CASE EVENT DATE: 20190730
